FAERS Safety Report 14782248 (Version 2)
Quarter: 2018Q4

REPORT INFORMATION
  Report Type: Report from Study
  Country: BR (occurrence: BR)
  Receive Date: 20180420
  Receipt Date: 20181127
  Transmission Date: 20190204
  Serious: Yes (Other)
  Sender: FDA-Public Use
  Company Number: BR-ROCHE-2109986

PATIENT
  Sex: Female
  Weight: 77 kg

DRUGS (3)
  1. XOLAIR [Suspect]
     Active Substance: OMALIZUMAB
     Route: 058
     Dates: start: 20180329
  2. XOLAIR [Suspect]
     Active Substance: OMALIZUMAB
     Route: 058
     Dates: start: 20181001
  3. XOLAIR [Suspect]
     Active Substance: OMALIZUMAB
     Indication: ASTHMA
     Route: 058
     Dates: start: 201802

REACTIONS (9)
  - Weight increased [Not Recovered/Not Resolved]
  - Nasal injury [Recovering/Resolving]
  - Wound dehiscence [Recovered/Resolved]
  - Wound decomposition [Recovered/Resolved]
  - Injection site discolouration [Not Recovered/Not Resolved]
  - Pyrexia [Recovered/Resolved]
  - Pain in extremity [Not Recovered/Not Resolved]
  - Movement disorder [Recovering/Resolving]
  - Ear injury [Recovered/Resolved]
